FAERS Safety Report 18528203 (Version 1)
Quarter: 2020Q4

REPORT INFORMATION
  Report Type: Spontaneous
  Country: PT (occurrence: PT)
  Receive Date: 20201120
  Receipt Date: 20201120
  Transmission Date: 20210114
  Serious: Yes (Disabling)
  Sender: FDA-Public Use
  Company Number: NVSC2020PT304599

PATIENT
  Age: 21 Year
  Sex: Female

DRUGS (8)
  1. FILOTEMPO [Suspect]
     Active Substance: AMINOPHYLLINE
     Indication: RESPIRATORY TRACT INFECTION
     Dosage: 675 MG, QD 1 DE 8 EM 8 H
     Route: 048
     Dates: start: 20191206
  2. BEN-U-RON [Suspect]
     Active Substance: ACETAMINOPHEN
     Indication: RESPIRATORY TRACT INFECTION
     Dosage: 2 G, QD,1 DE 12 EM 12 HORAS (COMPRIMIDO)
     Route: 048
     Dates: start: 20191206
  3. SIMBICORT TURBUHALER [Suspect]
     Active Substance: BUDESONIDE\FORMOTEROL FUMARATE
     Indication: RESPIRATORY TRACT INFECTION
     Dosage: UNK
     Route: 065
     Dates: start: 20191206
  4. CODIPRONT [Suspect]
     Active Substance: CODEINE\PHENYLTOLOXAMINE
     Indication: RESPIRATORY TRACT INFECTION
     Dosage: 40 MG, QD, 1ID
     Route: 048
     Dates: start: 20191206
  5. OTO-SYNALAR N [Suspect]
     Active Substance: FLUOCINOLONE ACETONIDE\NEOMYCIN SULFATE\POLYMYXIN B SULFATE
     Indication: RESPIRATORY TRACT INFECTION
     Dosage: UNK,2ID
     Route: 001
     Dates: start: 20191206
  6. ETODOLAC. [Suspect]
     Active Substance: ETODOLAC
     Indication: RESPIRATORY TRACT INFECTION
     Dosage: 900 MG, QD, 1 DE 8/8H (COMPRIMIDO REVESTIDO)
     Route: 048
     Dates: start: 20191206
  7. AMOXICILLIN, CLAVULANIC ACID [Suspect]
     Active Substance: AMOXICILLIN\CLAVULANIC ACID
     Indication: RESPIRATORY TRACT INFECTION
     Dosage: 2 G, QD, 1 G DE 12 EM 12 H (COMPRIMIDO REVESTIDO + COMPRIMIDO)
     Route: 048
     Dates: start: 20191206
  8. MEBOCAINA FORTE [Suspect]
     Active Substance: BENOXINATE HYDROCHLORIDE\CETYLPYRIDINIUM CHLORIDE\TYROTHRICIN
     Indication: RESPIRATORY TRACT INFECTION
     Dosage: 15.6 MG, QD, 1 PASTILHA DE  8 EM 8H
     Route: 065
     Dates: start: 20191206

REACTIONS (2)
  - Fatigue [Recovered/Resolved]
  - Somnolence [Recovered/Resolved]

NARRATIVE: CASE EVENT DATE: 20191206
